FAERS Safety Report 23439880 (Version 2)
Quarter: 2024Q1

REPORT INFORMATION
  Report Type: Report from Study
  Country: CA (occurrence: None)
  Receive Date: 20240124
  Receipt Date: 20240215
  Transmission Date: 20240409
  Serious: Yes (Hospitalization)
  Sender: FDA-Public Use
  Company Number: 2024A013601

PATIENT
  Sex: Male

DRUGS (1)
  1. IMFINZI [Suspect]
     Active Substance: DURVALUMAB
     Indication: Hepatobiliary cancer
     Route: 042
     Dates: start: 20231017

REACTIONS (2)
  - COVID-19 [Unknown]
  - Urinary tract infection [Unknown]
